FAERS Safety Report 19650260 (Version 1)
Quarter: 2021Q3

REPORT INFORMATION
  Report Type: Spontaneous
  Country: US (occurrence: US)
  Receive Date: 20210802
  Receipt Date: 20210802
  Transmission Date: 20211014
  Serious: Yes (Hospitalization, Disabling)
  Sender: FDA-Public Use
  Company Number: None

PATIENT
  Age: 45 Year
  Sex: Male
  Weight: 78.75 kg

DRUGS (3)
  1. LEVOFLOXACIN. [Suspect]
     Active Substance: LEVOFLOXACIN
     Indication: ATYPICAL PNEUMONIA
     Route: 048
     Dates: start: 20180201, end: 20180212
  2. ATORVASTATIN [Concomitant]
     Active Substance: ATORVASTATIN
  3. PSYLLIUM HUSK FIBER [Concomitant]

REACTIONS (4)
  - Quality of life decreased [None]
  - Depression [None]
  - Paraesthesia [None]
  - Tendon rupture [None]

NARRATIVE: CASE EVENT DATE: 20180201
